FAERS Safety Report 18146505 (Version 2)
Quarter: 2021Q1

REPORT INFORMATION
  Report Type: Report from Study
  Country: FR (occurrence: FR)
  Receive Date: 20200813
  Receipt Date: 20210208
  Transmission Date: 20210419
  Serious: Yes (Other)
  Sender: FDA-Public Use
  Company Number: FR-BRISTOL-MYERS SQUIBB COMPANY-14160105

PATIENT
  Age: 84 Year
  Sex: Female

DRUGS (2)
  1. ECONAZOLE. [Interacting]
     Active Substance: ECONAZOLE NITRATE
     Indication: VULVOVAGINAL RASH
     Dosage: UNK
     Route: 065
  2. WARFARIN SODIUM. [Suspect]
     Active Substance: WARFARIN SODIUM
     Indication: ANTICOAGULANT THERAPY
     Dosage: 3 MILLIGRAM
     Route: 065

REACTIONS (3)
  - Anticoagulation drug level increased [Unknown]
  - International normalised ratio increased [Recovering/Resolving]
  - Drug interaction [Unknown]
